FAERS Safety Report 4338825-3 (Version None)
Quarter: 2004Q1

REPORT INFORMATION
  Report Type: 
  Country: None (occurrence: None)
  Receive Date: 20040329
  Receipt Date: 20040212
  Transmission Date: 20041129
  Serious: No
  Sender: FDA-Public Use
  Company Number: 04P-163-0250007-00

PATIENT
  Age: 73 Year
  Sex: Female

DRUGS (7)
  1. HUMIRA [Suspect]
     Indication: RHEUMATOID ARTHRITIS
     Dosage: 40 MG, 1IN 2 WK, SUBCUTANEOUS
     Route: 058
     Dates: start: 20031101
  2. METOPROLOL SUCCINATE [Concomitant]
  3. HYDOCHLOROTHIAZIDE [Concomitant]
  4. METHOTREXATE [Concomitant]
  5. COLCHICINE [Concomitant]
  6. ONE-A-DAY [Concomitant]
  7. POTASSIUM [Concomitant]

REACTIONS (3)
  - NAUSEA [None]
  - PRODUCTIVE COUGH [None]
  - RHINORRHOEA [None]
